FAERS Safety Report 9780717 (Version 1)
Quarter: 2013Q4

REPORT INFORMATION
  Report Type: Spontaneous
  Country: DE (occurrence: DE)
  Receive Date: 20131224
  Receipt Date: 20131224
  Transmission Date: 20140711
  Serious: Yes (Other)
  Sender: FDA-Public Use
  Company Number: DE-JNJFOC-20131212849

PATIENT
  Sex: 0

DRUGS (5)
  1. INFLIXIMAB, RECOMBINANT [Suspect]
     Indication: COLITIS ULCERATIVE
     Route: 042
  2. AZATHIOPRINE [Concomitant]
     Route: 065
  3. 6 MERCAPTOPURINE [Concomitant]
     Route: 065
  4. CORTICOSTEROIDS [Concomitant]
     Route: 065
  5. 5 AMINOSALICYLIC ACID [Concomitant]
     Route: 065

REACTIONS (2)
  - Colectomy [Unknown]
  - Hypersensitivity [Unknown]
